FAERS Safety Report 9469846 (Version 2)
Quarter: 2013Q3

REPORT INFORMATION
  Report Type: Spontaneous
  Country: US (occurrence: US)
  Receive Date: 20130822
  Receipt Date: 20130912
  Transmission Date: 20140515
  Serious: No
  Sender: FDA-Public Use
  Company Number: US-009507513-1308USA008514

PATIENT
  Age: 81 Year
  Sex: Male
  Weight: 177 kg

DRUGS (6)
  1. JANUVIA [Suspect]
     Indication: TYPE 2 DIABETES MELLITUS
     Dosage: 50 MG/ ONCE DAILY
     Route: 048
     Dates: start: 20120109
  2. AMARYL [Concomitant]
  3. PRECOSE [Concomitant]
  4. GLUCOPHAGE [Concomitant]
  5. GLUCOTROL [Concomitant]
  6. ACTOS [Concomitant]

REACTIONS (4)
  - Lip swelling [Recovered/Resolved]
  - Diarrhoea [Unknown]
  - Asthenia [Unknown]
  - Hypersensitivity [Unknown]
